FAERS Safety Report 13304254 (Version 9)
Quarter: 2019Q1

REPORT INFORMATION
  Report Type: Report from Study
  Country: JP (occurrence: JP)
  Receive Date: 20170308
  Receipt Date: 20190204
  Transmission Date: 20190417
  Serious: Yes (Hospitalization, Disabling, Other)
  Sender: FDA-Public Use
  Company Number: JP-BRISTOL-MYERS SQUIBB COMPANY-BMS-2017-019103

PATIENT
  Age: 75 Year
  Sex: Female
  Weight: 47 kg

DRUGS (6)
  1. METOCLOPRAMIDE. [Concomitant]
     Active Substance: METOCLOPRAMIDE
     Indication: MALIGNANT MELANOMA STAGE IV
     Dosage: 5 MG, QID
     Route: 048
     Dates: start: 20170203, end: 20170301
  2. THYRADIN S [Concomitant]
     Active Substance: LEVOTHYROXINE SODIUM
     Indication: HYPOTHYROIDISM
     Dosage: 12.5 ?G, QD
     Route: 048
     Dates: start: 20150501
  3. IPILIMUMAB [Suspect]
     Active Substance: IPILIMUMAB
     Indication: PRODUCT USED FOR UNKNOWN INDICATION
     Dosage: 3 MG/KG, QD
     Route: 041
     Dates: start: 20170127, end: 20170127
  4. IPILIMUMAB [Suspect]
     Active Substance: IPILIMUMAB
     Indication: MALIGNANT MELANOMA STAGE IV
     Dosage: 3 MG/KG, Q2WK
     Route: 041
     Dates: start: 20170106, end: 20170106
  5. REBAMIPIDE [Concomitant]
     Active Substance: REBAMIPIDE
     Indication: MALIGNANT MELANOMA STAGE IV
     Dosage: 100 MG, TID
     Route: 048
     Dates: start: 20170106
  6. LOXOPROFEN NA [Concomitant]
     Active Substance: LOXOPROFEN SODIUM
     Indication: MALIGNANT MELANOMA STAGE IV
     Dosage: 60 MG, TID
     Route: 048
     Dates: start: 20161125

REACTIONS (4)
  - Delirium [Recovered/Resolved]
  - Hypoglycaemia [Unknown]
  - Cancer pain [Not Recovered/Not Resolved]
  - Malignant neoplasm progression [Unknown]

NARRATIVE: CASE EVENT DATE: 20170203
